FAERS Safety Report 9466814 (Version 1)
Quarter: 2013Q3

REPORT INFORMATION
  Report Type: Spontaneous
  Country: US (occurrence: None)
  Receive Date: 20130816
  Receipt Date: 20130816
  Transmission Date: 20140515
  Serious: Yes (Death)
  Sender: FDA-Public Use
  Company Number: UTC-036519

PATIENT
  Age: 81 Year
  Sex: Female
  Weight: 57.7 kg

DRUGS (2)
  1. TYVASO [Suspect]
     Indication: PULMONARY ARTERIAL HYPERTENSION
     Route: 055
     Dates: start: 20130131
  2. COUMADIN (WARFARIN SODIUM) (UNKNOWN) [Concomitant]

REACTIONS (1)
  - Death [None]
